FAERS Safety Report 4776783-8 (Version None)
Quarter: 2005Q3

REPORT INFORMATION
  Report Type: 
  Country: None (occurrence: None)
  Receive Date: 20050923
  Receipt Date: 20050623
  Transmission Date: 20060218
  Serious: No
  Sender: FDA-Public Use
  Company Number: DE-BRISTOL-MYERS SQUIBB COMPANY-13021290

PATIENT
  Age: 37 Year
  Sex: Male

DRUGS (2)
  1. METFORMIN HCL [Suspect]
     Indication: DIABETES MELLITUS NON-INSULIN-DEPENDENT
     Route: 048
     Dates: start: 20041112, end: 20050607
  2. GLICLAZIDE [Suspect]
     Indication: DIABETES MELLITUS NON-INSULIN-DEPENDENT
     Route: 048
     Dates: start: 20041211, end: 20050607

REACTIONS (2)
  - PNEUMONIA PRIMARY ATYPICAL [None]
  - PULMONARY FIBROSIS [None]
